FAERS Safety Report 5449576-6 (Version None)
Quarter: 2007Q3

REPORT INFORMATION
  Report Type: 
  Country: None (occurrence: None)
  Receive Date: 20070910
  Receipt Date: 20070824
  Transmission Date: 20080115
  Serious: Yes (Disabling, Other)
  Sender: FDA-Public Use
  Company Number: PHBS2006JP19946

PATIENT
  Age: 54 Year
  Sex: Male

DRUGS (2)
  1. VISUDYNE [Suspect]
     Indication: POLYPOIDAL CHOROIDAL VASCULOPATHY
     Dates: start: 20051109, end: 20051109
  2. VISUDYNE [Suspect]
     Indication: POLYPOIDAL CHOROIDAL VASCULOPATHY
     Dates: start: 20050708, end: 20070708

REACTIONS (8)
  - CHORIORETINAL ATROPHY [None]
  - DISEASE PROGRESSION [None]
  - MACULAR DEGENERATION [None]
  - MACULOPATHY [None]
  - METAMORPHOPSIA [None]
  - RETINAL DEGENERATION [None]
  - SCOTOMA [None]
  - VISUAL ACUITY REDUCED [None]
